FAERS Safety Report 21347683 (Version 1)
Quarter: 2022Q3

REPORT INFORMATION
  Report Type: Spontaneous
  Country: DE (occurrence: DE)
  Receive Date: 20220919
  Receipt Date: 20220919
  Transmission Date: 20221027
  Serious: Yes (Other)
  Sender: FDA-Public Use
  Company Number: DE-CELLTRION INC.-2021DE019349

PATIENT

DRUGS (12)
  1. RITUXIMAB [Suspect]
     Active Substance: RITUXIMAB
     Indication: T-cell lymphoma
     Dosage: (7 CYCLES) AS PART OF R-CHOEP-14
     Route: 065
  2. PREDNISOLONE [Suspect]
     Active Substance: PREDNISOLONE
     Indication: T-cell lymphoma
     Dosage: UNK, CYCLIC (7 CYCLES)/R-CHOEP-14
  3. CYCLOPHOSPHAMIDE [Suspect]
     Active Substance: CYCLOPHOSPHAMIDE
     Indication: T-cell lymphoma
     Dosage: UNK, CYCLIC (7 CYCLES)/R-CHOEP-14
  4. CYCLOPHOSPHAMIDE [Suspect]
     Active Substance: CYCLOPHOSPHAMIDE
     Dosage: R-CHOEP-14 CHEMOTHERAPY
     Route: 065
  5. ETOPOSIDE [Suspect]
     Active Substance: ETOPOSIDE
     Indication: T-cell lymphoma
     Dosage: UNK, CYCLIC (7 CYCLES)/R-CHOEP-14 CHEMOTHERAPY
     Route: 065
  6. ETOPOSIDE [Suspect]
     Active Substance: ETOPOSIDE
     Dosage: R-CHOEP-14 CHEMOTHERAPY
     Route: 065
  7. PREDNISONE [Suspect]
     Active Substance: PREDNISONE
     Indication: T-cell lymphoma
     Dosage: R-CHOEP-14 CHEMOTHERAPY
     Route: 065
  8. DOXORUBICIN [Suspect]
     Active Substance: DOXORUBICIN
     Indication: T-cell lymphoma
     Dosage: UNK, CYCLIC (7 CYCLES)/R-CHOEP-14
  9. DOXORUBICIN [Suspect]
     Active Substance: DOXORUBICIN
     Dosage: R-CHOEP-14 CHEMOTHERAPY
     Route: 065
  10. VINCRISTINE [Suspect]
     Active Substance: VINCRISTINE
     Indication: T-cell lymphoma
     Dosage: UNK, CYCLIC (7 CYCLES)/R-CHOEP-14
  11. VINCRISTINE [Suspect]
     Active Substance: VINCRISTINE
     Dosage: R-CHOEP-14 CHEMOTHERAPY
     Route: 065
  12. CYCLOPHOSPHAMIDE\DOXORUBICIN\ETOPOSIDE\PREDNISONE\VINCRISTINE [Suspect]
     Active Substance: CYCLOPHOSPHAMIDE\DOXORUBICIN\ETOPOSIDE\PREDNISONE\VINCRISTINE
     Indication: T-cell lymphoma
     Dosage: 7 CYCLES R-CHOEP-14 CHEMOTHERAPY

REACTIONS (7)
  - Retinal artery occlusion [Unknown]
  - Optic ischaemic neuropathy [Unknown]
  - Disorder of orbit [Unknown]
  - Toxicity to various agents [Unknown]
  - Retinal haemorrhage [Unknown]
  - Blindness [Unknown]
  - Off label use [Unknown]
